FAERS Safety Report 5002947-4 (Version None)
Quarter: 2006Q2

REPORT INFORMATION
  Report Type: 
  Country: None (occurrence: None)
  Receive Date: 20060516
  Receipt Date: 20060503
  Transmission Date: 20061013
  Serious: Yes (Hospitalization)
  Sender: FDA-Public Use
  Company Number: FR-GLAXOSMITHKLINE-B0422180A

PATIENT
  Age: 89 Year
  Sex: Female

DRUGS (3)
  1. AUGMENTIN '125' [Suspect]
     Dosage: 1G THREE TIMES PER DAY
     Route: 048
     Dates: start: 20060322, end: 20060402
  2. TOPALGIC (FRANCE) [Suspect]
     Route: 048
  3. ZOCOR [Suspect]
     Route: 048

REACTIONS (2)
  - LEUKOPENIA [None]
  - NEUTROPENIA [None]
